FAERS Safety Report 15152966 (Version 1)
Quarter: 2018Q3

REPORT INFORMATION
  Report Type: Spontaneous
  Country: US (occurrence: US)
  Receive Date: 20180717
  Receipt Date: 20180717
  Transmission Date: 20181010
  Serious: No
  Sender: FDA-Public Use
  Company Number: US-GLENMARK PHARMACEUTICALS-2018GMK035429

PATIENT

DRUGS (4)
  1. GABAPENTIN TABLETS [Suspect]
     Active Substance: GABAPENTIN
     Dosage: 4 OF THE 600MG AT THE TIME
     Route: 065
  2. GABAPENTIN TABLETS [Suspect]
     Active Substance: GABAPENTIN
     Indication: NEURALGIA
     Dosage: 1600 MG, BID (1600 MG, BID (IN THE MORNING AND AT NIGHT)
     Route: 065
  3. GABAPENTIN TABLETS [Suspect]
     Active Substance: GABAPENTIN
     Indication: NEURALGIA
     Dosage: 1200 MG, TID; 2 IN THE MORNING, 2 AFTERNOON AND 2 AT NIGHT
     Dates: start: 201612
  4. GABAPENTIN TABLETS [Suspect]
     Active Substance: GABAPENTIN
     Dosage: 2800 MG, BID (IN THE MORNING AND AT NIGHT)
     Route: 065

REACTIONS (8)
  - Drug effect decreased [Unknown]
  - Drug effective for unapproved indication [Unknown]
  - Drug tolerance [Unknown]
  - Intentional overdose [Unknown]
  - Somnolence [Recovered/Resolved]
  - Intentional product use issue [Unknown]
  - Intentional product misuse [Unknown]
  - Dizziness [Recovered/Resolved]
